FAERS Safety Report 8540428-1 (Version None)
Quarter: 2012Q3

REPORT INFORMATION
  Report Type: 
  Country: None (occurrence: None)
  Receive Date: 20120726
  Receipt Date: 20111201
  Transmission Date: 20120928
  Serious: No
  Sender: FDA-Public Use
  Company Number: US-ASTRAZENECA-2011SE37496

PATIENT
  Age: 53 Year
  Sex: Male
  Weight: 90.7 kg

DRUGS (17)
  1. SEROQUEL [Suspect]
     Indication: SCHIZOPHRENIA, PARANOID TYPE
     Route: 048
     Dates: start: 20110501, end: 20110620
  2. SEROQUEL [Suspect]
     Route: 048
     Dates: start: 20110620
  3. ATIVAN [Concomitant]
     Route: 048
  4. GELSIBROZIL [Concomitant]
     Route: 065
  5. LOW DOSE OF ASPIRIN [Concomitant]
     Route: 048
  6. SEROQUEL [Suspect]
     Route: 048
     Dates: start: 20110620
  7. SEROQUEL [Suspect]
     Indication: BIPOLAR DISORDER
     Route: 048
     Dates: start: 20110501, end: 20110620
  8. SEROQUEL [Suspect]
     Route: 048
     Dates: start: 20110620
  9. SEROQUEL [Suspect]
     Route: 048
     Dates: start: 20110901
  10. SEROQUEL [Suspect]
     Dosage: 2 HALFS, TWICE A DAY
     Route: 048
  11. SEROQUEL [Suspect]
     Dosage: 2 HALFS, TWICE A DAY
     Route: 048
  12. COLESTIPOL HYDROCHLORIDE [Concomitant]
     Indication: BLOOD CHOLESTEROL ABNORMAL
     Route: 048
  13. LOW DOSE OF ASPIRIN [Concomitant]
     Indication: ANTICOAGULANT THERAPY
     Route: 048
  14. SEROQUEL [Suspect]
     Route: 048
     Dates: start: 20110620
  15. VISTARIL [Concomitant]
     Route: 048
  16. SEROQUEL [Suspect]
     Route: 048
     Dates: start: 20110901
  17. ATIVAN [Concomitant]
     Indication: DEPRESSION
     Route: 048

REACTIONS (6)
  - BLOOD PRESSURE DECREASED [None]
  - INAPPROPRIATE SCHEDULE OF DRUG ADMINISTRATION [None]
  - PULSE PRESSURE DECREASED [None]
  - DRUG DOSE OMISSION [None]
  - ARTHRALGIA [None]
  - WRONG TECHNIQUE IN DRUG USAGE PROCESS [None]
